FAERS Safety Report 16106545 (Version 1)
Quarter: 2019Q1

REPORT INFORMATION
  Report Type: Report from Study
  Country: US (occurrence: US)
  Receive Date: 20190322
  Receipt Date: 20190322
  Transmission Date: 20190418
  Serious: Yes (Other)
  Sender: FDA-Public Use
  Company Number: US-SA-2019SA074513

PATIENT
  Age: 48 Year
  Sex: Male

DRUGS (10)
  1. FENUGREEK [TRIGONELLA FOENUM-GRAECUM] [Concomitant]
     Dosage: UNK, PRN
  2. ACTOS [Concomitant]
     Active Substance: PIOGLITAZONE HYDROCHLORIDE
     Dosage: 15 MG, QD WITH LARGEST MEAL OF THE DAY
     Route: 048
  3. INSULIN GLARGINE [Suspect]
     Active Substance: INSULIN GLARGINE
     Dosage: 15 U, HS
  4. BACLOFEN. [Concomitant]
     Active Substance: BACLOFEN
     Dosage: 10 MG, PRN
     Route: 048
  5. NOVOLOG [Concomitant]
     Active Substance: INSULIN ASPART
     Dosage: WITH SLIDING SCALE PRN
     Route: 058
  6. KEPPRA [Concomitant]
     Active Substance: LEVETIRACETAM
     Dosage: 500 MG, BID
     Route: 048
  7. TRADJENTA [Concomitant]
     Active Substance: LINAGLIPTIN
     Dosage: 5 MG, QD
     Route: 048
  8. ASPIRIN EC [Concomitant]
     Active Substance: ASPIRIN
     Dosage: 81 MG, PRN
     Route: 048
  9. ALPHA LIPOIC ACID [Concomitant]
     Active Substance: .ALPHA.-LIPOIC ACID
     Dosage: UNK, PRN
  10. NOVOLIN [Concomitant]
     Active Substance: INSULIN HUMAN
     Dosage: PER SLIDING SCALE

REACTIONS (6)
  - Depression [Unknown]
  - Hypertension [Unknown]
  - Migraine [Unknown]
  - Type 2 diabetes mellitus [Unknown]
  - Hyperlipidaemia [Unknown]
  - Seizure [Unknown]

NARRATIVE: CASE EVENT DATE: 20190314
